FAERS Safety Report 11685271 (Version 16)
Quarter: 2025Q1

REPORT INFORMATION
  Report Type: Spontaneous
  Country: FR (occurrence: FR)
  Receive Date: 20151030
  Receipt Date: 20250128
  Transmission Date: 20250409
  Serious: Yes (Death, Hospitalization, Other)
  Sender: ALEXION PHARMACEUTICALS
  Company Number: 2015SF04662

PATIENT
  Age: 71 Year

DRUGS (159)
  1. OMEPRAZOLE [Suspect]
     Active Substance: OMEPRAZOLE
     Indication: Product used for unknown indication
     Dosage: 20 MG, DAILY
  2. OMEPRAZOLE [Suspect]
     Active Substance: OMEPRAZOLE
     Dosage: 20 MG, DAILY
  3. ESOMEPRAZOLE SODIUM [Suspect]
     Active Substance: ESOMEPRAZOLE SODIUM
     Dosage: 20 MG, QD
  4. ALBUTEROL SULFATE [Suspect]
     Active Substance: ALBUTEROL SULFATE
     Indication: Product used for unknown indication
     Route: 065
  5. ALBUTEROL SULFATE [Suspect]
     Active Substance: ALBUTEROL SULFATE
     Dosage: 2 DF, QD
  6. ALBUTEROL SULFATE [Suspect]
     Active Substance: ALBUTEROL SULFATE
  7. ALBUTEROL SULFATE [Suspect]
     Active Substance: ALBUTEROL SULFATE
     Dosage: 1 DF, Q12H
  8. ALBUTEROL SULFATE [Suspect]
     Active Substance: ALBUTEROL SULFATE
  9. CLONAZEPAM [Suspect]
     Active Substance: CLONAZEPAM
     Indication: Product used for unknown indication
  10. CLONAZEPAM [Suspect]
     Active Substance: CLONAZEPAM
     Dosage: 30 MG, QD
  11. CLONAZEPAM [Suspect]
     Active Substance: CLONAZEPAM
     Dosage: 4 MG, QD
  12. ASPIRIN [Suspect]
     Active Substance: ASPIRIN
     Indication: Product used for unknown indication
  13. ASPIRIN [Suspect]
     Active Substance: ASPIRIN
  14. ASPIRIN [Suspect]
     Active Substance: ASPIRIN
     Dosage: 250 MILLIGRAM, QD
  15. ASPIRIN [Suspect]
     Active Substance: ASPIRIN
     Dosage: 20 MILLIGRAM, QD
  16. ASPIRIN [Suspect]
     Active Substance: ASPIRIN
     Dosage: 200 MILLIGRAM, QD
  17. ASPIRIN [Suspect]
     Active Substance: ASPIRIN
     Dosage: 250 MG, QD
  18. ASPIRIN [Suspect]
     Active Substance: ASPIRIN
     Dosage: 20 MG, QD
  19. ASPIRIN [Suspect]
     Active Substance: ASPIRIN
     Dosage: 200 MG, QD
  20. ASPIRIN [Suspect]
     Active Substance: ASPIRIN
  21. ALTACE [Suspect]
     Active Substance: RAMIPRIL
     Indication: Product used for unknown indication
     Dosage: 5 MILLIGRAM, QD
  22. ALTACE [Suspect]
     Active Substance: RAMIPRIL
     Dosage: 5 MG, QD
  23. ALTACE [Suspect]
     Active Substance: RAMIPRIL
  24. ASPIRIN DL-LYSINE [Suspect]
     Active Substance: ASPIRIN DL-LYSINE
     Indication: Product used for unknown indication
     Dosage: 20 MG,QD
  25. ASPIRIN DL-LYSINE [Suspect]
     Active Substance: ASPIRIN DL-LYSINE
     Dosage: 250 MG, QD
  26. ASPIRIN DL-LYSINE [Suspect]
     Active Substance: ASPIRIN DL-LYSINE
     Dosage: 250 MG, QD
  27. ASPIRIN DL-LYSINE [Suspect]
     Active Substance: ASPIRIN DL-LYSINE
     Dosage: 20 MG, QD
  28. ASPIRIN DL-LYSINE [Suspect]
     Active Substance: ASPIRIN DL-LYSINE
  29. CELEBREX [Suspect]
     Active Substance: CELECOXIB
     Indication: Product used for unknown indication
  30. CELEBREX [Suspect]
     Active Substance: CELECOXIB
  31. CELECOXIB [Suspect]
     Active Substance: CELECOXIB
     Indication: Product used for unknown indication
     Route: 065
  32. CELECOXIB [Suspect]
     Active Substance: CELECOXIB
  33. CELECOXIB [Suspect]
     Active Substance: CELECOXIB
  34. CELECOXIB [Suspect]
     Active Substance: CELECOXIB
  35. DIACEREIN [Suspect]
     Active Substance: DIACEREIN
     Indication: Product used for unknown indication
     Dosage: 50 MG, 2X/DAY (ONCE EVERY 12HOURS)
  36. DIACEREIN [Suspect]
     Active Substance: DIACEREIN
     Dosage: 100 MG, BID
  37. DIACEREIN [Suspect]
     Active Substance: DIACEREIN
     Dosage: 100 MG, BID
  38. DIACEREIN [Suspect]
     Active Substance: DIACEREIN
     Dosage: 200.000MG QD
  39. DIACEREIN [Suspect]
     Active Substance: DIACEREIN
     Dosage: 50 MG, BID
  40. DIACEREIN [Suspect]
     Active Substance: DIACEREIN
     Dosage: 200.000MG QD
  41. DIACEREIN [Suspect]
     Active Substance: DIACEREIN
     Dosage: 50 MG, 2X/DAY (ONCE EVERY 12HOURS)
  42. Deturgylone [Concomitant]
     Indication: Product used for unknown indication
     Dosage: 1 DF, QD
  43. Deturgylone [Concomitant]
     Dosage: 1 DF, QD
  44. Deturgylone [Concomitant]
     Dosage: 1 DOSAGE FORM, 1/DAY
  45. Deturgylone [Concomitant]
     Dosage: 1 DOSAGE FORM, 1/DAY
  46. Deturgylone [Concomitant]
     Dosage: 1 DOSAGE FORM, 1/DAY
  47. Deturgylone [Concomitant]
     Dosage: 1 DOSAGE FORM, 1/DAY
  48. FUROSEMIDE [Suspect]
     Active Substance: FUROSEMIDE
     Indication: Product used for unknown indication
  49. FUROSEMIDE [Suspect]
     Active Substance: FUROSEMIDE
     Dosage: 40 MILLIGRAM, QD
  50. FUROSEMIDE [Suspect]
     Active Substance: FUROSEMIDE
     Dosage: 40 MG, QD
  51. NITROGLYCERIN [Suspect]
     Active Substance: NITROGLYCERIN
     Indication: Product used for unknown indication
     Dosage: 10 MILLIGRAM, QD
  52. NITROGLYCERIN [Suspect]
     Active Substance: NITROGLYCERIN
  53. NITROGLYCERIN [Suspect]
     Active Substance: NITROGLYCERIN
     Dosage: 10 MILLIGRAM, QD
  54. NITROGLYCERIN [Suspect]
     Active Substance: NITROGLYCERIN
     Dosage: 10 MG, QD
  55. NITROGLYCERIN [Suspect]
     Active Substance: NITROGLYCERIN
     Dosage: 10 MG, QD
  56. VERAPAMIL HYDROCHLORIDE [Suspect]
     Active Substance: VERAPAMIL HYDROCHLORIDE
     Indication: Product used for unknown indication
     Dosage: 240 MG, QD
  57. LASIX [Suspect]
     Active Substance: FUROSEMIDE
     Indication: Product used for unknown indication
     Dosage: 40 MG,QD
  58. LASIX [Suspect]
     Active Substance: FUROSEMIDE
     Dosage: 40 MG,QD
  59. MIANSERIN HYDROCHLORIDE [Suspect]
     Active Substance: MIANSERIN HYDROCHLORIDE
     Indication: Product used for unknown indication
     Dosage: 60 MILLIGRAM, QD
  60. MIANSERIN HYDROCHLORIDE [Suspect]
     Active Substance: MIANSERIN HYDROCHLORIDE
     Dosage: 60 MG, QD
  61. MIANSERIN HYDROCHLORIDE [Suspect]
     Active Substance: MIANSERIN HYDROCHLORIDE
     Dosage: 60.000MG QD
  62. POLYETHYLENE GLYCOL 3350 [Suspect]
     Active Substance: POLYETHYLENE GLYCOL 3350
     Dosage: 2 DF,QD
  63. OXYGEN [Concomitant]
     Active Substance: OXYGEN
     Indication: Product used for unknown indication
     Route: 065
  64. OXYGEN [Concomitant]
     Active Substance: OXYGEN
  65. OXYGEN [Concomitant]
     Active Substance: OXYGEN
  66. OXYGEN [Concomitant]
     Active Substance: OXYGEN
  67. OXYGEN [Concomitant]
     Active Substance: OXYGEN
  68. CLOBAZAM [Suspect]
     Active Substance: CLOBAZAM
     Indication: Product used for unknown indication
     Dosage: 30 MILLIGRAM, QD (10 MG, 3X/DAY (ONCE EVERY 8HOURS)
  69. CLOBAZAM [Suspect]
     Active Substance: CLOBAZAM
     Indication: Product used for unknown indication
     Dosage: 90 MILLIGRAM, QD
  70. CLOBAZAM [Suspect]
     Active Substance: CLOBAZAM
     Dosage: 20 MILLIGRAM, QD
  71. CLOBAZAM [Suspect]
     Active Substance: CLOBAZAM
     Dosage: 4 MILLIGRAM, QD
  72. CLOBAZAM [Suspect]
     Active Substance: CLOBAZAM
     Dosage: 30 MILLIGRAM, QD
  73. CLOBAZAM [Suspect]
     Active Substance: CLOBAZAM
     Dosage: 30 MG, QD
  74. CLOBAZAM [Suspect]
     Active Substance: CLOBAZAM
     Dosage: 20 MG, QD
  75. CLOBAZAM [Suspect]
     Active Substance: CLOBAZAM
     Dosage: 4 MG, QD
  76. CLOBAZAM [Suspect]
     Active Substance: CLOBAZAM
     Dosage: 90 MG, QD
  77. CLOBAZAM [Suspect]
     Active Substance: CLOBAZAM
     Dosage: 30 MG, QD
  78. CLOBAZAM [Suspect]
     Active Substance: CLOBAZAM
     Dosage: 10 MG, QD (TID,10 MG, 3X/DAY (ONCE EVERY 8HOURS){/)
  79. CLOBAZAM [Suspect]
     Active Substance: CLOBAZAM
     Dosage: 90 MILLIGRAM, QD
  80. ACETAMINOPHEN [Suspect]
     Active Substance: ACETAMINOPHEN
     Indication: Product used for unknown indication
     Dosage: 100 MG, BID (ONCE EVERY 12HOURS)
  81. ACETAMINOPHEN [Suspect]
     Active Substance: ACETAMINOPHEN
     Dosage: 1000 MG, 2X/DAY (ONCE EVERY 12HOURS)
  82. ACETAMINOPHEN [Suspect]
     Active Substance: ACETAMINOPHEN
     Dosage: 200 MG, BID
  83. ACETAMINOPHEN [Suspect]
     Active Substance: ACETAMINOPHEN
     Dosage: 100 MILLIGRAM, 2/DAY
  84. ACETAMINOPHEN [Suspect]
     Active Substance: ACETAMINOPHEN
     Dosage: 100 MG, Q12H
  85. ACETAMINOPHEN [Suspect]
     Active Substance: ACETAMINOPHEN
     Dosage: 200 MG, Q12H
  86. ACETAMINOPHEN [Suspect]
     Active Substance: ACETAMINOPHEN
     Dosage: 1000 MG, Q12H (1000 MG, 2X/DAY (ONCE EVERY 12HOURS))
  87. ACETAMINOPHEN [Suspect]
     Active Substance: ACETAMINOPHEN
     Dosage: 2000 MG, QD (TABLET)
  88. ACETAMINOPHEN [Suspect]
     Active Substance: ACETAMINOPHEN
     Dosage: 200 MG, QD
  89. ACETAMINOPHEN [Suspect]
     Active Substance: ACETAMINOPHEN
  90. PIPAMPERONE [Suspect]
     Active Substance: PIPAMPERONE
     Indication: Product used for unknown indication
     Dosage: 20 MG,QD
  91. PIPAMPERONE [Suspect]
     Active Substance: PIPAMPERONE
     Dosage: 20 MG,QD
  92. PREDNAZOLINE [Suspect]
     Active Substance: PREDNAZOLINE
     Indication: Product used for unknown indication
     Dosage: UNK UNK, QD (1 PUFF QD)
  93. PREDNAZOLINE [Suspect]
     Active Substance: PREDNAZOLINE
     Dosage: 1 DF, QD (1 PUFF, QD)
  94. PREDNAZOLINE [Suspect]
     Active Substance: PREDNAZOLINE
     Dosage: 1 DF, QD
  95. PREDNAZOLINE [Suspect]
     Active Substance: PREDNAZOLINE
     Dosage: 1 DF, QD
  96. PROPRANOLOL [Suspect]
     Active Substance: PROPRANOLOL HYDROCHLORIDE
     Dosage: 20 MG,QD
  97. PROPRANOLOL [Suspect]
     Active Substance: PROPRANOLOL HYDROCHLORIDE
     Dosage: 100 MILLIGRAM, BID
  98. RIVOTRIL [Suspect]
     Active Substance: CLONAZEPAM
     Dosage: 4 MG,QD
  99. SEREVENT DISKUS [Suspect]
     Active Substance: SALMETEROL XINAFOATE
     Indication: Product used for unknown indication
     Dosage: 1 DF,BID (1 PUFF) (ONCE EVERY 12HOURS)
  100. SEREVENT DISKUS [Suspect]
     Active Substance: SALMETEROL XINAFOATE
     Dosage: 2 DF, BID
     Route: 065
  101. SEREVENT DISKUS [Suspect]
     Active Substance: SALMETEROL XINAFOATE
     Dosage: 1 DF,BID (1 PUFF) (ONCE EVERY 12HOURS)
  102. SEREVENT DISKUS [Suspect]
     Active Substance: SALMETEROL XINAFOATE
     Dosage: 4 DF, QD(1 DF,BID (1 PUFF) (ONCE EVERY 12HOURS))
  103. SEREVENT DISKUS [Suspect]
     Active Substance: SALMETEROL XINAFOATE
     Dosage: 1 DF,BID (1 PUFF) (ONCE EVERY 12HOURS)
  104. SEREVENT DISKUS [Suspect]
     Active Substance: SALMETEROL XINAFOATE
     Dosage: 2 DF, BID(1 DOSAGE FORM, BID ((1 PUFF) (ONCE EVERY 12HOURS)
  105. SEREVENT DISKUS [Suspect]
     Active Substance: SALMETEROL XINAFOATE
  106. SEREVENT DISKUS [Suspect]
     Active Substance: SALMETEROL XINAFOATE
     Dosage: 2 DF, Q12H
  107. SALMETEROL XINAFOATE [Suspect]
     Active Substance: SALMETEROL XINAFOATE
     Indication: Product used for unknown indication
  108. SALMETEROL XINAFOATE [Suspect]
     Active Substance: SALMETEROL XINAFOATE
  109. SALMETEROL XINAFOATE [Suspect]
     Active Substance: SALMETEROL XINAFOATE
     Dosage: 2 DOSAGE FORM, QD 1 DF,BID (1 PUFF) (ONCE EVERY 12HOURS)
  110. SALMETEROL XINAFOATE [Suspect]
     Active Substance: SALMETEROL XINAFOATE
     Dosage: 2 DF, QD (2 DOSAGE FORM, QD 1 DF,BID (1 PUFF) (ONCE EVERY 12HOURS))
  111. SALMETEROL XINAFOATE [Suspect]
     Active Substance: SALMETEROL XINAFOATE
  112. SIMVASTATIN [Suspect]
     Active Substance: SIMVASTATIN
     Indication: Product used for unknown indication
     Dosage: 20 MILLIGRAM, QD
  113. SIMVASTATIN [Suspect]
     Active Substance: SIMVASTATIN
     Dosage: 20 MG,QD
  114. TRIHEXYPHENIDYL HYDROCHLORIDE [Suspect]
     Active Substance: TRIHEXYPHENIDYL HYDROCHLORIDE
     Indication: Product used for unknown indication
     Dosage: 1 MG, QD
  115. TRIHEXYPHENIDYL HYDROCHLORIDE [Suspect]
     Active Substance: TRIHEXYPHENIDYL HYDROCHLORIDE
     Dosage: 1 MG, QD
  116. NITROGLYCERIN [Suspect]
     Active Substance: NITROGLYCERIN
     Indication: Product used for unknown indication
     Dosage: 10 MG, DAILY
  117. NITROGLYCERIN [Suspect]
     Active Substance: NITROGLYCERIN
     Dosage: 10 MG,QD
     Route: 065
  118. NITROGLYCERIN [Suspect]
     Active Substance: NITROGLYCERIN
     Route: 065
  119. TREMIN [Suspect]
     Active Substance: TRIHEXYPHENIDYL HYDROCHLORIDE
     Indication: Product used for unknown indication
     Dosage: 1 DOSAGE FORM, QD
  120. TREMIN [Suspect]
     Active Substance: TRIHEXYPHENIDYL HYDROCHLORIDE
     Dosage: 1 MILLIGRAM, QD
  121. ALBUTEROL [Suspect]
     Active Substance: ALBUTEROL
     Indication: Product used for unknown indication
  122. ALBUTEROL [Suspect]
     Active Substance: ALBUTEROL
  123. ALBUTEROL [Suspect]
     Active Substance: ALBUTEROL
  124. ALBUTEROL [Suspect]
     Active Substance: ALBUTEROL
     Dosage: 2 DF, QD
  125. ALBUTEROL [Suspect]
     Active Substance: ALBUTEROL
     Dosage: 1 DF, BID
  126. ALBUTEROL [Suspect]
     Active Substance: ALBUTEROL
  127. ALBUTEROL [Suspect]
     Active Substance: ALBUTEROL
  128. ALBUTEROL [Suspect]
     Active Substance: ALBUTEROL
     Dosage: 2.000DF QD
  129. ISOPTIN [Suspect]
     Active Substance: VERAPAMIL HYDROCHLORIDE
     Indication: Product used for unknown indication
     Dosage: 240 MILLIGRAM, QD
  130. ZOCOR [Suspect]
     Active Substance: SIMVASTATIN
     Indication: Product used for unknown indication
     Dosage: 20 MG,QD
  131. ZOPICLONE [Suspect]
     Active Substance: ZOPICLONE
     Indication: Product used for unknown indication
     Dosage: 15 MG,QD
  132. ZOPICLONE [Suspect]
     Active Substance: ZOPICLONE
     Dosage: 15 MG,QD
  133. CLOBAZAM [Suspect]
     Active Substance: CLOBAZAM
     Indication: Product used for unknown indication
     Dosage: 20 MG, QD
  134. CLOBAZAM [Suspect]
     Active Substance: CLOBAZAM
     Dosage: 20 MG, QD
  135. NITROGLYCERIN [Suspect]
     Active Substance: NITROGLYCERIN
     Indication: Product used for unknown indication
  136. NITROGLYCERIN [Suspect]
     Active Substance: NITROGLYCERIN
  137. ACETAMINOPHEN [Suspect]
     Active Substance: ACETAMINOPHEN
     Dosage: 200 MG, QD
  138. ACETAMINOPHEN [Suspect]
     Active Substance: ACETAMINOPHEN
  139. ACETAMINOPHEN [Suspect]
     Active Substance: ACETAMINOPHEN
     Dosage: 400 MG, QD
  140. ACETAMINOPHEN [Suspect]
     Active Substance: ACETAMINOPHEN
     Dosage: 2000 MG, QD
  141. ESOMEPRAZOLE MAGNESIUM [Suspect]
     Active Substance: ESOMEPRAZOLE MAGNESIUM
     Indication: Product used for unknown indication
     Dosage: 20 MG, QD
  142. ESOMEPRAZOLE MAGNESIUM [Suspect]
     Active Substance: ESOMEPRAZOLE MAGNESIUM
     Dosage: 20 MG, QD
  143. OXYMETAZOLINE HYDROCHLORIDE\PREDNISOLONE SODIUM PHOSPHATE [Concomitant]
     Active Substance: OXYMETAZOLINE HYDROCHLORIDE\PREDNISOLONE SODIUM PHOSPHATE
     Indication: Product used for unknown indication
     Dosage: 1 DF, 1X/DAY/1 PUFF, QD
  144. CELECOXIB [Suspect]
     Active Substance: CELECOXIB
     Indication: Product used for unknown indication
     Route: 065
  145. NITROGLYCERIN [Suspect]
     Active Substance: NITROGLYCERIN
     Indication: Product used for unknown indication
     Dosage: 10 MG, QD
  146. NITROGLYCERIN [Suspect]
     Active Substance: NITROGLYCERIN
  147. NITROGLYCERIN [Suspect]
     Active Substance: NITROGLYCERIN
  148. NITROGLYCERIN [Suspect]
     Active Substance: NITROGLYCERIN
     Dosage: 10 MG, QD
  149. NITROGLYCERIN [Suspect]
     Active Substance: NITROGLYCERIN
     Dosage: 10 MG,QD
  150. POLYETHYLENE GLYCOL 3350 [Suspect]
     Active Substance: POLYETHYLENE GLYCOL 3350
     Indication: Product used for unknown indication
     Dosage: 2 DF,QD
  151. OMEPRAZOLE [Suspect]
     Active Substance: OMEPRAZOLE
     Indication: Product used for unknown indication
  152. OMEPRAZOLE [Suspect]
     Active Substance: OMEPRAZOLE
     Dosage: 20 MG, QD
  153. PROPAFENONE HYDROCHLORIDE [Suspect]
     Active Substance: PROPAFENONE HYDROCHLORIDE
     Indication: Product used for unknown indication
     Dosage: 30 MG, TID
  154. PROPAFENONE HYDROCHLORIDE [Suspect]
     Active Substance: PROPAFENONE HYDROCHLORIDE
     Dosage: 10 MG, 3X/DAY (ONCE EVERY 8HOURS)
  155. RAMIPRIL [Suspect]
     Active Substance: RAMIPRIL
     Dosage: 5 MG, QD5 MILLIGRAM, 1/DAY
  156. POLYETHYLENE GLYCOL [Suspect]
     Active Substance: POLYETHYLENE GLYCOL
     Indication: Product used for unknown indication
     Dosage: 2 DF,QD
  157. PEG 3350 [Suspect]
     Active Substance: POLYETHYLENE GLYCOL 3350
     Indication: Product used for unknown indication
     Dosage: 2 DF, QD
  158. PEG 3350 [Suspect]
     Active Substance: POLYETHYLENE GLYCOL 3350
  159. ASPIRIN LYSINE [Suspect]
     Active Substance: ASPIRIN LYSINE
     Indication: Product used for unknown indication
     Dosage: 20 MG,QD

REACTIONS (13)
  - Disease recurrence [Fatal]
  - Cerebrovascular accident [Fatal]
  - Cerebral artery thrombosis [Fatal]
  - Ischaemic stroke [Fatal]
  - Respiratory distress [Fatal]
  - Respiratory failure [Fatal]
  - Areflexia [Fatal]
  - Facial paralysis [Fatal]
  - Nausea [Fatal]
  - Hemiplegia [Fatal]
  - Brain scan abnormal [Fatal]
  - Off label use [Fatal]
  - Product use issue [Fatal]
